FAERS Safety Report 6895466-1 (Version None)
Quarter: 2010Q3

REPORT INFORMATION
  Report Type: 
  Country: None (occurrence: None)
  Receive Date: 20100802
  Receipt Date: 20100723
  Transmission Date: 20110219
  Serious: Yes (Other)
  Sender: FDA-Public Use
  Company Number: US-ROCHE-717691

PATIENT
  Sex: Male
  Weight: 77.1 kg

DRUGS (17)
  1. ACTEMRA [Suspect]
     Dosage: FORM: INFUSION
     Route: 042
  2. ACTEMRA [Suspect]
     Route: 042
  3. ACTEMRA [Suspect]
     Route: 042
     Dates: start: 20100601, end: 20100723
  4. PLAQUENIL [Concomitant]
  5. MEDROL [Concomitant]
  6. VITAMINUM D [Concomitant]
     Dosage: DRUG NAME: VITAMIN D
  7. CELEBREX [Concomitant]
  8. SYNTHROID [Concomitant]
  9. PROZAC [Concomitant]
  10. PAMELOR [Concomitant]
  11. FOSAMAX [Concomitant]
  12. ANDROGEL [Concomitant]
  13. PREVACID [Concomitant]
  14. ABREVA [Concomitant]
     Dosage: DRUG NAME: ABBREVA
  15. LOMOTIL [Concomitant]
  16. DARVON-N [Concomitant]
  17. IBUPROFEN [Concomitant]

REACTIONS (1)
  - SQUAMOUS CELL CARCINOMA OF SKIN [None]
